FAERS Safety Report 7339663-X (Version None)
Quarter: 2011Q1

REPORT INFORMATION
  Report Type: 
  Country: None (occurrence: None)
  Receive Date: 20110308
  Receipt Date: 20110223
  Transmission Date: 20110831
  Serious: Yes (Hospitalization)
  Sender: FDA-Public Use
  Company Number: CA-ELI_LILLY_AND_COMPANY-CA201102006870

PATIENT
  Age: 62 Year
  Sex: Female

DRUGS (15)
  1. PAXIL [Concomitant]
  2. CLONAZEPAM [Concomitant]
  3. ZOPICLONE [Concomitant]
  4. FORTEO [Suspect]
     Indication: OSTEOPOROSIS
     Dosage: 20 UG, DAILY (1/D)
     Route: 058
     Dates: start: 20090527, end: 20110124
  5. CEREZYME [Concomitant]
  6. VITAMIN B COMPLEX CAP [Concomitant]
  7. FORTEO [Suspect]
     Dosage: 20 UG, DAILY (1/D)
     Route: 058
     Dates: start: 20110128
  8. MULTI-VITAMIN [Concomitant]
  9. ATACAND [Concomitant]
  10. VITAMIN D [Concomitant]
  11. RITUXAN [Concomitant]
  12. CALCIUM [Concomitant]
  13. PREDNISONE TAB [Concomitant]
  14. FOLIC ACID [Concomitant]
  15. OXYCONTIN [Concomitant]

REACTIONS (4)
  - ABDOMINAL MASS [None]
  - RHEUMATOID ARTHRITIS [None]
  - PATHOLOGICAL FRACTURE [None]
  - POLYP COLORECTAL [None]
